FAERS Safety Report 19957577 (Version 2)
Quarter: 2021Q4

REPORT INFORMATION
  Report Type: Spontaneous
  Country: IN (occurrence: IN)
  Receive Date: 20211014
  Receipt Date: 20211121
  Transmission Date: 20220303
  Serious: Yes (Other)
  Sender: FDA-Public Use
  Company Number: IN-009507513-2110IND002939

PATIENT
  Age: 54 Year
  Sex: Male

DRUGS (2)
  1. POSACONAZOLE [Suspect]
     Active Substance: POSACONAZOLE
     Indication: Rhinocerebral mucormycosis
     Dosage: UNK
     Dates: start: 2021
  2. AMPHOTERICIN B [Suspect]
     Active Substance: AMPHOTERICIN B
     Indication: Rhinocerebral mucormycosis
     Dosage: 300 MILLIGRAM
     Dates: start: 20210429

REACTIONS (6)
  - Brain abscess [Unknown]
  - Mucormycosis [Unknown]
  - Brain oedema [Unknown]
  - Orthopnoea [Unknown]
  - Central nervous system lesion [Unknown]
  - Drug ineffective [Unknown]
